FAERS Safety Report 15874347 (Version 1)
Quarter: 2019Q1

REPORT INFORMATION
  Report Type: Other
  Country: US (occurrence: US)
  Receive Date: 20190126
  Receipt Date: 20190126
  Transmission Date: 20190417
  Serious: Yes (Hospitalization)
  Sender: FDA-Public Use
  Company Number: US-ACORDA-ACO_151755_2018

PATIENT
  Age: 58 Year
  Sex: Female

DRUGS (2)
  1. OCREVUS [Concomitant]
     Active Substance: OCRELIZUMAB
     Indication: PRODUCT USED FOR UNKNOWN INDICATION
     Dosage: UNK
     Route: 065
     Dates: start: 20180605
  2. AMPYRA [Suspect]
     Active Substance: DALFAMPRIDINE
     Indication: PRODUCT USED FOR UNKNOWN INDICATION
     Dosage: UNK, QD
     Route: 048
     Dates: start: 201711

REACTIONS (4)
  - Fall [Recovered/Resolved]
  - Therapy cessation [Unknown]
  - Hip arthroplasty [Recovered/Resolved]
  - Multiple sclerosis relapse [Recovering/Resolving]

NARRATIVE: CASE EVENT DATE: 20180418
